FAERS Safety Report 17531988 (Version 1)
Quarter: 2020Q1

REPORT INFORMATION
  Report Type: Spontaneous
  Country: US (occurrence: US)
  Receive Date: 20200304
  Receipt Date: 20200304
  Transmission Date: 20200409
  Serious: No
  Sender: FDA-Public Use
  Company Number: None

PATIENT
  Age: 60 Year
  Sex: Female

DRUGS (1)
  1. ORENCIA [Suspect]
     Active Substance: ABATACEPT
     Dosage: ?          OTHER FREQUENCY:OTHER;?
     Route: 040
     Dates: start: 20191001

REACTIONS (3)
  - Alopecia [None]
  - Arthralgia [None]
  - Nail growth abnormal [None]

NARRATIVE: CASE EVENT DATE: 20200304
